FAERS Safety Report 8588289 (Version 2)
Quarter: 2012Q4

REPORT INFORMATION
  Report Type: Report from Study
  Country: US (occurrence: US)
  Receive Date: 20120531
  Receipt Date: 20121019
  Transmission Date: 20130627
  Serious: Yes (Hospitalization, Other)
  Sender: FDA-Public Use
  Company Number: US-TEVA-340105USA

PATIENT
  Age: 69 Year
  Sex: Male

DRUGS (6)
  1. SIMVASTATIN [Suspect]
  2. SAXAGLIPTIN [Suspect]
     Indication: TYPE 2 DIABETES MELLITUS
     Dates: start: 20100821, end: 20120418
  3. FENOFIBRATE [Suspect]
  4. INSULIN HUMAN [Suspect]
     Indication: TYPE 2 DIABETES MELLITUS
     Dates: start: 20111019
  5. ACETYLSALICYLIC ACID [Concomitant]
  6. EZETIMIBE [Concomitant]

REACTIONS (1)
  - Renal failure acute [Recovered/Resolved]
